FAERS Safety Report 14817111 (Version 3)
Quarter: 2024Q4

REPORT INFORMATION
  Report Type: Spontaneous
  Country: US (occurrence: US)
  Receive Date: 20180426
  Receipt Date: 20241212
  Transmission Date: 20250115
  Serious: Yes (Hospitalization)
  Sender: PFIZER
  Company Number: US-PFIZER INC-2018170464

PATIENT
  Age: 63 Year
  Sex: Female
  Weight: 113.4 kg

DRUGS (5)
  1. BOSULIF [Suspect]
     Active Substance: BOSUTINIB MONOHYDRATE
     Indication: Chronic myeloid leukaemia
     Dosage: 500 MG
     Route: 048
     Dates: start: 2014
  2. BOSULIF [Suspect]
     Active Substance: BOSUTINIB MONOHYDRATE
     Dosage: 200 MG, DAILY (TWO 100MG TABS DAILY)
     Route: 048
     Dates: start: 201809
  3. BOSULIF [Suspect]
     Active Substance: BOSUTINIB MONOHYDRATE
     Dosage: 200 MG
  4. ALLOPURINOL [Concomitant]
     Active Substance: ALLOPURINOL
     Dosage: 150 MG, (BREAK IN HALF TO REDUCE DOSE TO 150MG)
     Dates: start: 201809
  5. LANSOPRAZOLE [Concomitant]
     Active Substance: LANSOPRAZOLE
     Dosage: 30 MG CAPSULE, DELAYED RELEASE(DR/EC) 1 CAPSULE(S), ENTERIC COATED PO (ORALLY) DAILY
     Route: 048

REACTIONS (6)
  - Meningioma benign [Recovered/Resolved]
  - COVID-19 [Unknown]
  - Dehydration [Not Recovered/Not Resolved]
  - Diarrhoea [Not Recovered/Not Resolved]
  - Blood creatinine increased [Recovering/Resolving]
  - Depression [Unknown]

NARRATIVE: CASE EVENT DATE: 20180202
